FAERS Safety Report 7488110-6 (Version None)
Quarter: 2011Q2

REPORT INFORMATION
  Report Type: 
  Country: None (occurrence: None)
  Receive Date: 20110518
  Receipt Date: 20110510
  Transmission Date: 20111010
  Serious: Yes (Other)
  Sender: FDA-Public Use
  Company Number: US-ROCHE-765537

PATIENT
  Sex: Male
  Weight: 82.1 kg

DRUGS (13)
  1. FLUOROURACIL [Concomitant]
  2. LEUCOVORIN CALCIUM [Concomitant]
  3. LORTAB [Concomitant]
     Dosage: AS NEEDED; DRUG REPORTED AS LORTAB 10
     Route: 048
  4. NEURONTIN [Concomitant]
     Route: 048
  5. FOLIC ACID [Concomitant]
     Route: 048
  6. ZOFRAN [Concomitant]
     Dosage: AS NEEDED
     Route: 048
  7. REGLAN [Concomitant]
     Dosage: BEFORE MEALS AND AT BEDTIME
     Route: 048
  8. CAPECITABINE [Suspect]
     Dosage: DOSE: 1500 MG IN MORNING AND 1500 MG IN EVENING
     Route: 048
     Dates: start: 20100901, end: 20110101
  9. NORVASC [Concomitant]
     Route: 048
  10. LISINOPRIL [Concomitant]
     Route: 048
  11. HYDROCORTISONE [Concomitant]
     Route: 054
  12. PYRIDOXINE HCL [Concomitant]
     Route: 048
  13. VALIUM [Concomitant]
     Dosage: AS NEEDED
     Route: 048

REACTIONS (7)
  - DRUG INEFFECTIVE [None]
  - ABDOMINAL PAIN [None]
  - VOMITING [None]
  - TUMOUR MARKER INCREASED [None]
  - RECTAL HAEMORRHAGE [None]
  - FATIGUE [None]
  - NAUSEA [None]
